FAERS Safety Report 7469312-1 (Version None)
Quarter: 2011Q2

REPORT INFORMATION
  Report Type: 
  Country: None (occurrence: None)
  Receive Date: 20110429
  Receipt Date: 20110415
  Transmission Date: 20111010
  Serious: Yes (Other)
  Sender: FDA-Public Use
  Company Number: ALA_02656_2011

PATIENT
  Sex: Male

DRUGS (1)
  1. REGLAN [Suspect]
     Indication: PRODUCT USED FOR UNKNOWN INDICATION
     Dosage: DF
     Dates: start: 20051001, end: 20090101

REACTIONS (6)
  - VOMITING [None]
  - DYSKINESIA [None]
  - KYPHOSIS [None]
  - NERVOUS SYSTEM DISORDER [None]
  - COUGH [None]
  - RETCHING [None]
